FAERS Safety Report 7801561-2 (Version None)
Quarter: 2011Q4

REPORT INFORMATION
  Report Type: 
  Country: None (occurrence: None)
  Receive Date: 20111006
  Receipt Date: 20111006
  Transmission Date: 20120403
  Serious: Yes (Hospitalization)
  Sender: FDA-Public Use
  Company Number: None

PATIENT
  Age: 73 Year
  Sex: Male
  Weight: 75 kg

DRUGS (5)
  1. COUMADIN [Suspect]
     Indication: KNEE ARTHROPLASTY
     Dosage: 2.5 MG DAILY PO CHRONIC
     Route: 048
  2. HYDROCODONE BITARTRATE AND ACETAMINOPHEN [Concomitant]
  3. BACTRIM [Suspect]
     Indication: PROSTATITIS
     Dosage: PO RECENT
     Route: 048
  4. LISINOPRIL [Concomitant]
  5. CRESTOR [Concomitant]

REACTIONS (2)
  - GASTRIC ULCER [None]
  - GASTROINTESTINAL HAEMORRHAGE [None]
